FAERS Safety Report 14643163 (Version 1)
Quarter: 2018Q1

REPORT INFORMATION
  Report Type: Spontaneous
  Country: US (occurrence: US)
  Receive Date: 20180315
  Receipt Date: 20180315
  Transmission Date: 20180509
  Serious: Yes (Other)
  Sender: FDA-Public Use
  Company Number: US-BAYER-2018-045042

PATIENT
  Age: 40 Year
  Sex: Male

DRUGS (2)
  1. KOVALTRY [Suspect]
     Active Substance: ANTIHEMOPHILIC FACTOR, HUMAN RECOMBINANT
     Indication: HAEMOPHILIA
     Dosage: UNK UNK, QD
     Route: 042
     Dates: start: 20180214
  2. KOVALTRY [Suspect]
     Active Substance: ANTIHEMOPHILIC FACTOR, HUMAN RECOMBINANT
     Indication: HAEMOPHILIA
     Dosage: EXTRA DOSE
     Route: 042
     Dates: start: 20180306

REACTIONS (2)
  - Haemorrhage [None]
  - Joint swelling [Recovered/Resolved]

NARRATIVE: CASE EVENT DATE: 201802
